FAERS Safety Report 21058158 (Version 5)
Quarter: 2022Q4

REPORT INFORMATION
  Report Type: Report from Study
  Country: US (occurrence: US)
  Receive Date: 20220708
  Receipt Date: 20221029
  Transmission Date: 20230112
  Serious: No
  Sender: FDA-Public Use
  Company Number: US-NOVARTISPH-NVSC2022US151560

PATIENT
  Age: 84 Year
  Sex: Male

DRUGS (1)
  1. ENTRESTO [Suspect]
     Active Substance: SACUBITRIL\VALSARTAN
     Indication: Cardiac failure congestive
     Dosage: 1 DOSAGE FORM, BID (24/26MG)
     Route: 048
     Dates: start: 20220601

REACTIONS (9)
  - Presyncope [Not Recovered/Not Resolved]
  - Peripheral swelling [Recovering/Resolving]
  - Weight increased [Recovering/Resolving]
  - Feeling abnormal [Not Recovered/Not Resolved]
  - Weight decreased [Recovering/Resolving]
  - Fatigue [Not Recovered/Not Resolved]
  - Cough [Unknown]
  - Hypotension [Not Recovered/Not Resolved]
  - Throat clearing [Unknown]

NARRATIVE: CASE EVENT DATE: 20220601
